FAERS Safety Report 11614627 (Version 4)
Quarter: 2015Q4

REPORT INFORMATION
  Report Type: Spontaneous
  Country: PT (occurrence: PT)
  Receive Date: 20151009
  Receipt Date: 20151126
  Transmission Date: 20160304
  Serious: Yes (Death, Hospitalization, Other)
  Sender: FDA-Public Use
  Company Number: PT-ROCHE-1642154

PATIENT
  Age: 74 Year
  Sex: Female

DRUGS (12)
  1. ISONIAZIDE [Concomitant]
     Active Substance: ISONIAZID
     Route: 065
     Dates: start: 201501
  2. OMEPRAZOL [Concomitant]
     Active Substance: OMEPRAZOLE
     Route: 048
  3. VOLTAREN [Concomitant]
     Active Substance: DICLOFENAC SODIUM
     Route: 048
  4. FOSAVANCE [Concomitant]
     Active Substance: ALENDRONATE SODIUM\CHOLECALCIFEROL
     Route: 065
  5. CELEBREX [Concomitant]
     Active Substance: CELECOXIB
  6. DIAZEPAM. [Concomitant]
     Active Substance: DIAZEPAM
  7. PARACETAMOL/TRAMADOL [Concomitant]
     Active Substance: ACETAMINOPHEN\TRAMADOL
     Route: 065
  8. LYRICA [Concomitant]
     Active Substance: PREGABALIN
  9. ROACTEMRA [Suspect]
     Active Substance: TOCILIZUMAB
     Indication: RHEUMATOID ARTHRITIS
     Route: 042
     Dates: start: 20150430, end: 201505
  10. VALGANCICLOVIR [Suspect]
     Active Substance: VALGANCICLOVIR
     Indication: CYTOMEGALOVIRUS INFECTION
     Route: 065
     Dates: start: 201508
  11. SERTRALINE [Concomitant]
     Active Substance: SERTRALINE HYDROCHLORIDE
     Indication: DEPRESSION
     Route: 048
  12. LETTER [Concomitant]
     Route: 065

REACTIONS (8)
  - Synovial rupture [Recovering/Resolving]
  - Oedema peripheral [Recovering/Resolving]
  - Pneumococcal sepsis [Not Recovered/Not Resolved]
  - Death [Fatal]
  - Pneumonia pneumococcal [Not Recovered/Not Resolved]
  - Cytomegalovirus infection [Unknown]
  - Herpes zoster [Recovered/Resolved]
  - Oral candidiasis [Recovered/Resolved]

NARRATIVE: CASE EVENT DATE: 201506
